FAERS Safety Report 5701929-4 (Version None)
Quarter: 2008Q2

REPORT INFORMATION
  Report Type: 
  Country: None (occurrence: None)
  Receive Date: 20080411
  Receipt Date: 20080403
  Transmission Date: 20081010
  Serious: Yes (Other)
  Sender: FDA-Public Use
  Company Number: PHNU2007DE03786

PATIENT
  Age: 53 Year
  Sex: Female
  Weight: 90 kg

DRUGS (2)
  1. DIOVAN [Suspect]
     Indication: HYPERTENSION
     Dosage: 160 MG/D
     Route: 048
     Dates: start: 20070929
  2. L-THYROXINE [Concomitant]
     Dosage: 125 UG/D
     Route: 065

REACTIONS (6)
  - ABNORMAL FAECES [None]
  - ARTHRALGIA [None]
  - ARTHRITIS [None]
  - ARTHROPATHY [None]
  - DIARRHOEA [None]
  - FLATULENCE [None]
